FAERS Safety Report 8228590-1 (Version None)
Quarter: 2012Q1

REPORT INFORMATION
  Report Type: 
  Country: None (occurrence: None)
  Receive Date: 20120322
  Receipt Date: 20110509
  Transmission Date: 20120608
  Serious: Yes (Other)
  Sender: FDA-Public Use
  Company Number: US-BRISTOL-MYERS SQUIBB COMPANY-15633084

PATIENT
  Age: 51 Year
  Sex: Female

DRUGS (4)
  1. BENADRYL [Concomitant]
     Indication: PREMEDICATION
  2. ALBUTEROL [Concomitant]
     Indication: PREMEDICATION
  3. PEPCID [Concomitant]
     Indication: PREMEDICATION
  4. ERBITUX [Suspect]
     Indication: RECTAL CANCER
     Dosage: FIRST DOSE OF 800MG ERBITUX INFUSION,THERE AFTER 500MG WEEKLY.
     Route: 042
     Dates: start: 20110324

REACTIONS (1)
  - HYPERSENSITIVITY [None]
